FAERS Safety Report 5690613-1 (Version None)
Quarter: 2008Q1

REPORT INFORMATION
  Report Type: 
  Country: None (occurrence: None)
  Receive Date: 20080331
  Receipt Date: 20080331
  Transmission Date: 20080703
  Serious: Yes (Hospitalization)
  Sender: FDA-Public Use
  Company Number: None

PATIENT
  Age: 54 Year
  Sex: Female
  Weight: 131 kg

DRUGS (1)
  1. BETASERON [Suspect]
     Indication: MULTIPLE SCLEROSIS
     Dosage: 3 TIMES A WEEK SQ
     Route: 058
     Dates: start: 20080307, end: 20080326

REACTIONS (10)
  - ASTHENIA [None]
  - CONFUSIONAL STATE [None]
  - FALL [None]
  - HAEMODIALYSIS [None]
  - HEAD INJURY [None]
  - HYPOGLYCAEMIA [None]
  - NAUSEA [None]
  - RENAL FAILURE [None]
  - VISION BLURRED [None]
  - VOMITING [None]
